FAERS Safety Report 5880713-5 (Version None)
Quarter: 2008Q3

REPORT INFORMATION
  Report Type: 
  Country: None (occurrence: None)
  Receive Date: 20080912
  Receipt Date: 20080606
  Transmission Date: 20090109
  Serious: No
  Sender: FDA-Public Use
  Company Number: US-ABBOTT-08P-163-0455803-00

PATIENT
  Sex: Female
  Weight: 49.032 kg

DRUGS (8)
  1. HUMIRA [Suspect]
     Indication: CROHN'S DISEASE
     Dosage: 160MG ONCE, 80MG ONCE, 40MG EVERY OTHER WEEK (UNIT DOSE)
     Route: 058
     Dates: start: 20080530, end: 20080530
  2. HUMIRA [Suspect]
     Dosage: 160MG ONCE, 80MG ONCE, 40MG EVERY OTHER WEEK (UNIT DOSE)
     Route: 058
     Dates: start: 20080613, end: 20080613
  3. METHOTREXATE [Concomitant]
     Indication: CROHN'S DISEASE
     Route: 030
  4. ESTRADIOL [Concomitant]
     Indication: HORMONE REPLACEMENT THERAPY
     Route: 023
  5. TRAZODONE HCL [Concomitant]
     Indication: INSOMNIA
     Route: 048
  6. VENLAFAXINE HCL [Concomitant]
     Indication: DEPRESSION
     Route: 048
  7. FOLIC ACID [Concomitant]
     Indication: DRUG USE FOR UNKNOWN INDICATION
     Route: 048
  8. EPIPEN [Concomitant]
     Indication: ANAPHYLACTIC REACTION
     Route: 030

REACTIONS (1)
  - FATIGUE [None]
